FAERS Safety Report 19843250 (Version 1)
Quarter: 2021Q3

REPORT INFORMATION
  Report Type: Report from Study
  Country: ES (occurrence: ES)
  Receive Date: 20210917
  Receipt Date: 20210917
  Transmission Date: 20211014
  Serious: Yes (Hospitalization)
  Sender: FDA-Public Use
  Company Number: ES-ROCHE-2908909

PATIENT
  Age: 85 Year
  Sex: Male
  Weight: 66.5 kg

DRUGS (3)
  1. ATEZOLIZUMAB. [Suspect]
     Active Substance: ATEZOLIZUMAB
     Indication: TRANSITIONAL CELL CARCINOMA
     Dosage: ON 10/JUL/2021, HE RECEIVED MOST RECENT DOSE OF ATEZOLIZUMAB PRIOR TO ONSET OF SAE.
     Route: 065
     Dates: start: 20210704
  2. CISPLATIN. [Suspect]
     Active Substance: CISPLATIN
     Indication: TRANSITIONAL CELL CARCINOMA
     Dosage: ON 10/JUL/2021, HE RECEIVED MOST RECENT DOSE OF CISPLATIN PRIOR TO ONSET OF SAE.
     Route: 065
     Dates: start: 20210704
  3. GEMCITABINE. [Suspect]
     Active Substance: GEMCITABINE
     Indication: TRANSITIONAL CELL CARCINOMA
     Dosage: ON 10/JUL/2021, HE RECEIVED MOST RECENT DOSE OF GEMCITABINE PRIOR TO ONSET OF SAE.
     Route: 065
     Dates: start: 20210704

REACTIONS (1)
  - Platelet count decreased [Recovered/Resolved]

NARRATIVE: CASE EVENT DATE: 20210820
